FAERS Safety Report 5119733-7 (Version None)
Quarter: 2006Q4

REPORT INFORMATION
  Report Type: 
  Country: None (occurrence: None)
  Receive Date: 20061003
  Receipt Date: 20061002
  Transmission Date: 20070319
  Serious: Yes (Death, Hospitalization)
  Sender: FDA-Public Use
  Company Number: KR-SANOFI-SYNTHELABO-F01200602058

PATIENT
  Sex: Male
  Weight: 52 kg

DRUGS (3)
  1. FLUOROURACIL [Suspect]
     Indication: GASTRIC CANCER
     Route: 042
     Dates: start: 20051006, end: 20051007
  2. OXALIPLATIN [Suspect]
     Indication: GASTRIC CANCER
     Route: 042
     Dates: start: 20051006, end: 20051006
  3. LEOCOVORIN [Suspect]
     Indication: GASTRIC CANCER
     Route: 042
     Dates: start: 20051006, end: 20051007

REACTIONS (1)
  - SEPTIC SHOCK [None]
